FAERS Safety Report 22905257 (Version 3)
Quarter: 2024Q2

REPORT INFORMATION
  Report Type: Report from Study
  Country: CA (occurrence: CA)
  Receive Date: 20230905
  Receipt Date: 20240503
  Transmission Date: 20240716
  Serious: Yes (Other)
  Sender: FDA-Public Use
  Company Number: CA-JNJFOC-20220609732

PATIENT
  Age: 37 Year
  Sex: Female
  Weight: 65.83 kg

DRUGS (3)
  1. REMICADE [Suspect]
     Active Substance: INFLIXIMAB
     Indication: Crohn^s disease
     Dosage: EXPIRY-01-AUG-2025
     Route: 041
     Dates: start: 20080128
  2. REMICADE [Suspect]
     Active Substance: INFLIXIMAB
     Dosage: EXPIRY: SE 2026
     Route: 041
     Dates: start: 20230824
  3. IMURAN [Suspect]
     Active Substance: AZATHIOPRINE
     Indication: Product used for unknown indication
     Route: 065
     Dates: end: 202204

REACTIONS (6)
  - Follicular lymphoma [Not Recovered/Not Resolved]
  - COVID-19 [Recovered/Resolved]
  - Blood test abnormal [Recovered/Resolved]
  - Off label use [Unknown]
  - Poor venous access [Recovered/Resolved]
  - Tenderness [Recovered/Resolved]

NARRATIVE: CASE EVENT DATE: 20080128
